FAERS Safety Report 4935322-9 (Version None)
Quarter: 2006Q1

REPORT INFORMATION
  Report Type: 
  Country: None (occurrence: None)
  Receive Date: 20060307
  Receipt Date: 20060228
  Transmission Date: 20060701
  Serious: Yes (Other)
  Sender: FDA-Public Use
  Company Number: US-BRISTOL-MYERS SQUIBB COMPANY-13299052

PATIENT
  Sex: Male

DRUGS (4)
  1. ERBITUX [Suspect]
     Indication: NEOPLASM MALIGNANT
     Route: 042
  2. CISPLATIN [Concomitant]
  3. FLUOROURACIL [Concomitant]
  4. RADIATION THERAPY [Concomitant]

REACTIONS (2)
  - ORAL INTAKE REDUCED [None]
  - STOMATITIS [None]
